FAERS Safety Report 7990130-X (Version None)
Quarter: 2011Q4

REPORT INFORMATION
  Report Type: 
  Country: None (occurrence: None)
  Receive Date: 20111219
  Receipt Date: 20110419
  Transmission Date: 20120403
  Serious: No
  Sender: FDA-Public Use
  Company Number: US-ASTRAZENECA-2011SE23042

PATIENT
  Age: 81 Year
  Sex: Female

DRUGS (2)
  1. SYNTHROID [Suspect]
     Indication: THYROID ATROPHY
     Dates: start: 19700101
  2. CRESTOR [Suspect]
     Route: 048

REACTIONS (5)
  - PALPITATIONS [None]
  - HEART RATE DECREASED [None]
  - BRONCHITIS [None]
  - ASTHENIA [None]
  - FATIGUE [None]
